FAERS Safety Report 8004449-X (Version None)
Quarter: 2011Q4

REPORT INFORMATION
  Report Type: 
  Country: None (occurrence: None)
  Receive Date: 20111223
  Receipt Date: 20111221
  Transmission Date: 20120403
  Serious: Yes (Other)
  Sender: FDA-Public Use
  Company Number: US-RB-032020-11

PATIENT
  Sex: Male

DRUGS (1)
  1. MUCINEX [Suspect]
     Indication: EUPHORIC MOOD
     Route: 048

REACTIONS (1)
  - INTENTIONAL DRUG MISUSE [None]
